FAERS Safety Report 24860537 (Version 2)
Quarter: 2025Q1

REPORT INFORMATION
  Report Type: Spontaneous
  Country: IL (occurrence: IL)
  Receive Date: 20250120
  Receipt Date: 20250318
  Transmission Date: 20250409
  Serious: Yes (Hospitalization, Other)
  Sender: CELLTRION
  Company Number: IL-CELLTRION INC.-2025IL001483

PATIENT

DRUGS (2)
  1. INFLIXIMAB [Suspect]
     Active Substance: INFLIXIMAB
     Indication: Colitis ulcerative
     Dosage: 120MG SYRINGE ONCE EVERY 2 WEEKS
     Route: 058
     Dates: start: 20240714
  2. INFLIXIMAB [Suspect]
     Active Substance: INFLIXIMAB
     Dosage: 120MG SYRINGE ONCE EVERY 2 WEEKS; LAST INJECTION ABOUT A WEEK AGO
     Route: 058
     Dates: start: 20240714

REACTIONS (6)
  - Heart valve calcification [Recovering/Resolving]
  - Heart valve replacement [Recovering/Resolving]
  - Drug delivery system malfunction [Recovering/Resolving]
  - Impaired quality of life [Not Recovered/Not Resolved]
  - Intentional dose omission [Recovering/Resolving]
  - Drug ineffective [Not Recovered/Not Resolved]
